FAERS Safety Report 25244947 (Version 2)
Quarter: 2025Q2

REPORT INFORMATION
  Report Type: Spontaneous
  Country: US (occurrence: US)
  Receive Date: 20250428
  Receipt Date: 20250603
  Transmission Date: 20250716
  Serious: Yes (Other)
  Sender: PRASCO
  Company Number: US-Prasco Laboratories-PRAS20250168

PATIENT
  Age: 84 Year

DRUGS (3)
  1. ESTRADIOL [Suspect]
     Active Substance: ESTRADIOL
     Indication: Vaginal disorder
     Route: 067
     Dates: start: 202504, end: 202504
  2. ESTRADIOL [Suspect]
     Active Substance: ESTRADIOL
     Indication: Preoperative care
  3. UNSPECIFIED INGREDIENT [Concomitant]
     Active Substance: UNSPECIFIED INGREDIENT
     Indication: Hypertension
     Route: 065

REACTIONS (5)
  - Urinary bladder haemorrhage [Not Recovered/Not Resolved]
  - Blister [Not Recovered/Not Resolved]
  - Bladder pain [Not Recovered/Not Resolved]
  - Burning sensation [Not Recovered/Not Resolved]
  - Off label use [None]

NARRATIVE: CASE EVENT DATE: 20250401
